FAERS Safety Report 15679424 (Version 2)
Quarter: 2019Q1

REPORT INFORMATION
  Report Type: Report from Study
  Country: CA (occurrence: CA)
  Receive Date: 20181203
  Receipt Date: 20190104
  Transmission Date: 20190417
  Serious: Yes (Hospitalization)
  Sender: FDA-Public Use
  Company Number: CA-BIOGEN-2018BI00665663

PATIENT
  Age: 7 Year
  Sex: Male

DRUGS (1)
  1. SPINRAZA [Suspect]
     Active Substance: NUSINERSEN
     Indication: SPINAL MUSCULAR ATROPHY
     Dosage: FIRST 3 LOADING DOSES AT 14 DAY INTERVALS. 4TH LOADING DOSE 30 DAYS AFTER 3RD DOSE. MAINTENANCE D...
     Route: 037
     Dates: start: 20181115, end: 20181126

REACTIONS (1)
  - Influenza [Recovered/Resolved]

NARRATIVE: CASE EVENT DATE: 20181126
